FAERS Safety Report 11490373 (Version 1)
Quarter: 2015Q3

REPORT INFORMATION
  Report Type: Spontaneous
  Country: CA (occurrence: CA)
  Receive Date: 20150909
  Receipt Date: 20150909
  Transmission Date: 20151125
  Serious: Yes (Hospitalization, Disabling)
  Sender: FDA-Public Use
  Company Number: CA-TEVA-592034ACC

PATIENT
  Age: 8 Year
  Sex: Male
  Weight: 15 kg

DRUGS (48)
  1. AMLODIPINE [Concomitant]
     Active Substance: AMLODIPINE BESYLATE
  2. LANSOPRAZOLE. [Concomitant]
     Active Substance: LANSOPRAZOLE
  3. ONDANSETRON [Concomitant]
     Active Substance: ONDANSETRON
  4. PREDNISONE. [Concomitant]
     Active Substance: PREDNISONE
  5. RISPERIDONE. [Concomitant]
     Active Substance: RISPERIDONE
  6. TRIMETHOPRIM-SULFAMETHOXAZOLE [Concomitant]
     Active Substance: SULFAMETHOXAZOLE\TRIMETHOPRIM
  7. ZINECARD [Concomitant]
     Active Substance: DEXRAZOXANE HYDROCHLORIDE
     Route: 042
  8. DIMENHYDRINATE. [Concomitant]
     Active Substance: DIMENHYDRINATE
  9. ENOXAPARIN [Concomitant]
     Active Substance: ENOXAPARIN
  10. MESNA FOR INJECTION [Concomitant]
     Active Substance: MESNA
     Route: 042
  11. TIMENTIN [Concomitant]
     Active Substance: CLAVULANATE POTASSIUM\TICARCILLIN DISODIUM
     Route: 042
  12. TOBRAMYCIN INJECTION USP [Concomitant]
  13. VINCRISTINE SULFATE INJECTION USP [Suspect]
     Active Substance: VINCRISTINE SULFATE
     Indication: ACUTE LYMPHOCYTIC LEUKAEMIA
     Route: 042
  14. CLOXACILLIN [Concomitant]
     Active Substance: CLOXACILLIN
  15. CYCLOPHOSPHAMIDE. [Concomitant]
     Active Substance: CYCLOPHOSPHAMIDE
     Route: 042
  16. FLUTICASONE [Concomitant]
     Active Substance: FLUTICASONE\FLUTICASONE PROPIONATE
  17. GRANULOCYTE COLONY STIMULATING FACTOR (G-CSF) [Concomitant]
  18. HYDROCORTISONE. [Concomitant]
     Active Substance: HYDROCORTISONE
  19. L-ASPARAGINASE [Concomitant]
     Active Substance: ASPARAGINASE
     Route: 030
  20. LORAZEPAM. [Concomitant]
     Active Substance: LORAZEPAM
  21. MELATONIN [Concomitant]
     Active Substance: MELATONIN
  22. MERCAPTOPURINE. [Concomitant]
     Active Substance: MERCAPTOPURINE
  23. PENTAMIDINE ISETHIONATE INJ 300MG/VIAL BP [Concomitant]
  24. RANITIDINE [Concomitant]
     Active Substance: RANITIDINE\RANITIDINE HYDROCHLORIDE
  25. VITAMIN K [Concomitant]
     Active Substance: PHYTONADIONE
  26. VINCRISTINE SULFATE INJECTION USP [Suspect]
     Active Substance: VINCRISTINE SULFATE
     Route: 042
  27. ACETAMINOPHEN. [Concomitant]
     Active Substance: ACETAMINOPHEN
  28. ALLOPURINOL. [Concomitant]
     Active Substance: ALLOPURINOL
  29. DIPHENHYDRAMINE. [Concomitant]
     Active Substance: DIPHENHYDRAMINE
  30. HYDROPHIL ONT [Concomitant]
     Route: 061
  31. LEUCOVORIN. [Concomitant]
     Active Substance: LEUCOVORIN
  32. METHYLPREDNISOLONE NOS [Concomitant]
     Active Substance: METHYLPREDNISOLONE OR METHYLPREDNISOLONE ACETATE
  33. SALBUTAMOL [Concomitant]
     Active Substance: ALBUTEROL
  34. AMOXICILLIN/CLAVULANATE [Concomitant]
     Active Substance: AMOXICILLIN\CLAVULANATE POTASSIUM
  35. DEXAMETHASONE. [Concomitant]
     Active Substance: DEXAMETHASONE
     Route: 047
  36. DOCUSATE SODIUM. [Concomitant]
     Active Substance: DOCUSATE SODIUM
  37. DOXORUBICIN HYDROCHLORIDE INJECTION [Concomitant]
     Active Substance: DOXORUBICIN HYDROCHLORIDE
  38. METRONIDAZOLE. [Concomitant]
     Active Substance: METRONIDAZOLE
  39. PIPERACILLIN/TAZOBACTAM [Concomitant]
     Active Substance: PIPERACILLIN SODIUM\TAZOBACTAM SODIUM
  40. CYTARABINE INJECTION [Concomitant]
     Active Substance: CYTARABINE
  41. FUROSEMIDE. [Concomitant]
     Active Substance: FUROSEMIDE
  42. METOCLOPRAMIDE. [Concomitant]
     Active Substance: METOCLOPRAMIDE
  43. POTASSIUM CHLORIDE. [Concomitant]
     Active Substance: POTASSIUM CHLORIDE
  44. VANCOMYCIN [Concomitant]
     Active Substance: VANCOMYCIN
  45. CEPHALEXIN. [Concomitant]
     Active Substance: CEPHALEXIN
  46. ETOPOSIDE INJECTION, USP [Concomitant]
     Active Substance: ETOPOSIDE
  47. METHOTREXATE [Concomitant]
     Active Substance: METHOTREXATE
  48. MORPHINE [Concomitant]
     Active Substance: MORPHINE

REACTIONS (3)
  - Eyelid ptosis [Unknown]
  - Neuromuscular toxicity [Unknown]
  - Posture abnormal [Unknown]
